FAERS Safety Report 9197877 (Version 2)
Quarter: 2013Q2

REPORT INFORMATION
  Report Type: Report from Study
  Country: PL (occurrence: PL)
  Receive Date: 20130328
  Receipt Date: 20130410
  Transmission Date: 20140414
  Serious: Yes (Hospitalization, Other)
  Sender: FDA-Public Use
  Company Number: PL-ACTELION-A-CH2013-81170

PATIENT
  Age: 17 Year
  Sex: Female
  Weight: 62 kg

DRUGS (5)
  1. TRACLEER [Suspect]
     Indication: PULMONARY ARTERIAL HYPERTENSION
     Dosage: 125 MG, BID
     Route: 048
     Dates: start: 20111208
  2. TRACLEER [Suspect]
     Dosage: 62.5 MG, BID
     Route: 048
     Dates: start: 20111031, end: 20111208
  3. SILDENAFIL [Concomitant]
     Dosage: UNK
     Dates: start: 201110
  4. FUROSEMIDE [Concomitant]
     Dosage: UNK
     Dates: start: 201110
  5. SPIRONOLACTONE [Concomitant]
     Dosage: UNK
     Dates: start: 201110

REACTIONS (5)
  - Pulmonary arterial hypertension [Recovered/Resolved with Sequelae]
  - Disease progression [Recovered/Resolved with Sequelae]
  - Cardiac failure [Recovered/Resolved with Sequelae]
  - N-terminal prohormone brain natriuretic peptide increased [Recovered/Resolved with Sequelae]
  - Exercise tolerance decreased [Recovered/Resolved with Sequelae]
